FAERS Safety Report 19689687 (Version 1)
Quarter: 2021Q3

REPORT INFORMATION
  Report Type: Spontaneous
  Country: FR (occurrence: FR)
  Receive Date: 20210812
  Receipt Date: 20210812
  Transmission Date: 20211014
  Serious: Yes (Other)
  Sender: FDA-Public Use
  Company Number: FR-SUN PHARMACEUTICAL INDUSTRIES LTD-2021RR-307659

PATIENT
  Age: 62 Year
  Sex: Female

DRUGS (6)
  1. DOXORUBICIN [Suspect]
     Active Substance: DOXORUBICIN
     Indication: LEIOMYOSARCOMA
     Dosage: UNK, 6 CYCLES
     Route: 065
     Dates: start: 201403
  2. TRABECTEDIN [Suspect]
     Active Substance: TRABECTEDIN
     Indication: HEPATIC MASS
     Dosage: UNK
     Route: 065
     Dates: start: 201611
  3. TRABECTEDIN [Suspect]
     Active Substance: TRABECTEDIN
     Indication: PULMONARY MASS
     Dosage: UNK
     Route: 065
     Dates: end: 201803
  4. PAZOPANIB [Suspect]
     Active Substance: PAZOPANIB
     Indication: DISEASE PROGRESSION
     Dosage: 800 MILLIGRAM, DAILY
     Route: 065
  5. GEMCITABINE. [Suspect]
     Active Substance: GEMCITABINE
     Indication: DISEASE PROGRESSION
     Dosage: UNK
     Route: 065
     Dates: start: 201901
  6. PAZOPANIB [Suspect]
     Active Substance: PAZOPANIB
     Dosage: 400 MILLIGRAM, DAILY
     Route: 065

REACTIONS (4)
  - Disease progression [Unknown]
  - Therapeutic product effect incomplete [Unknown]
  - Fatigue [Unknown]
  - Disease recurrence [Unknown]
